FAERS Safety Report 11235726 (Version 3)
Quarter: 2015Q3

REPORT INFORMATION
  Report Type: Spontaneous
  Country: CH (occurrence: GB)
  Receive Date: 20150702
  Receipt Date: 20150803
  Transmission Date: 20151125
  Serious: Yes (Death)
  Sender: FDA-Public Use
  Company Number: CH-LPDUSPRD-20130441

PATIENT
  Age: 48 Year
  Sex: Female

DRUGS (4)
  1. FERINJECT [Suspect]
     Active Substance: FERRIC CARBOXYMALTOSE
     Dosage: 1000 MG
     Route: 041
     Dates: start: 20121127, end: 20130116
  2. ZOTON [Suspect]
     Active Substance: LANSOPRAZOLE
     Dosage: DOSE UNKNOWN
     Route: 065
  3. MORPHINE [Suspect]
     Active Substance: MORPHINE
     Dosage: DOSE UNKNOWN
     Route: 048
  4. DIHYDROCODEINE [Concomitant]
     Active Substance: DIHYDROCODEINE
     Dosage: DOSE UNKNOWN
     Route: 065

REACTIONS (8)
  - Gastrointestinal haemorrhage [Fatal]
  - Dizziness [Recovered/Resolved with Sequelae]
  - Thrombocytopenia [Fatal]
  - Nausea [Recovered/Resolved with Sequelae]
  - Aplasia [Fatal]
  - Biopsy bone marrow abnormal [Fatal]
  - Headache [Recovered/Resolved with Sequelae]
  - Vaginal haemorrhage [Fatal]

NARRATIVE: CASE EVENT DATE: 201302
